FAERS Safety Report 5787498-1 (Version None)
Quarter: 2008Q2

REPORT INFORMATION
  Report Type: 
  Country: None (occurrence: None)
  Receive Date: 20080625
  Receipt Date: 20071214
  Transmission Date: 20081010
  Serious: No
  Sender: FDA-Public Use
  Company Number: US-ASTRAZENECA-2007UW25511

PATIENT
  Age: 88 Year
  Sex: Male
  Weight: 47.6 kg

DRUGS (4)
  1. PULMICORT FLEXHALER [Suspect]
     Indication: CHRONIC OBSTRUCTIVE PULMONARY DISEASE
     Dosage: TWO PUFFS IN AM
     Route: 055
     Dates: start: 20070910
  2. PULMICORT FLEXHALER [Suspect]
     Dosage: ONE PUFF BID
     Route: 055
  3. ASPIRIN [Concomitant]
  4. THYROID TAB [Concomitant]

REACTIONS (2)
  - DYSPNOEA [None]
  - INCREASED UPPER AIRWAY SECRETION [None]
